FAERS Safety Report 9029838 (Version 1)
Quarter: 2013Q1

REPORT INFORMATION
  Report Type: Spontaneous
  Country: US (occurrence: US)
  Receive Date: 20130124
  Receipt Date: 20130124
  Transmission Date: 20140127
  Serious: Yes (Hospitalization, Other)
  Sender: FDA-Public Use
  Company Number: US-009507513-2011SP040942

PATIENT
  Sex: 0

DRUGS (5)
  1. NUVARING [Suspect]
     Indication: MIGRAINE
     Dates: start: 20090902, end: 20090915
  2. NUVARING [Suspect]
     Indication: MENSTRUAL CYCLE MANAGEMENT
  3. YASMIN [Concomitant]
     Indication: DYSMENORRHOEA
     Dosage: 28^S GREEN PACKAGE; SAMPLES GIVEN 20JUN07 AND PRESCRIPTION UNTIL SEP2009
     Dates: start: 20070620, end: 200909
  4. VALTREX [Concomitant]
     Indication: ORAL HERPES
     Dosage: 1 G, QD
     Route: 048
     Dates: start: 20090824
  5. IMITREX (SUMATRIPTAN) [Concomitant]
     Indication: MIGRAINE
     Dates: start: 200901, end: 201010

REACTIONS (15)
  - Dyspnoea [Recovering/Resolving]
  - Lung disorder [Unknown]
  - Pleuritic pain [Recovering/Resolving]
  - Exercise tolerance decreased [Unknown]
  - Back pain [Unknown]
  - Pulmonary embolism [Recovering/Resolving]
  - Nausea [Unknown]
  - Vomiting [Unknown]
  - Anxiety [Unknown]
  - Depression [Unknown]
  - Stress [Unknown]
  - Acne [Unknown]
  - Headache [Not Recovered/Not Resolved]
  - Pulmonary infarction [Unknown]
  - Off label use [Unknown]
